FAERS Safety Report 8424856-0 (Version None)
Quarter: 2012Q2

REPORT INFORMATION
  Report Type: 
  Country: None (occurrence: None)
  Receive Date: 20120611
  Receipt Date: 20120529
  Transmission Date: 20120825
  Serious: Yes (Hospitalization)
  Sender: FDA-Public Use
  Company Number: AT-PAR PHARMACEUTICAL, INC-2012SCPR004422

PATIENT

DRUGS (18)
  1. ARIPIPRAZOLE [Interacting]
     Dosage: 30 MG, / DAY
     Route: 065
  2. VENLAFAXINE [Suspect]
     Dosage: 150 MG, / DAY
     Route: 065
  3. ARIPIPRAZOLE [Interacting]
     Indication: PSYCHOTIC DISORDER
     Dosage: 5 MG, / DAY
     Route: 065
  4. ARIPIPRAZOLE [Interacting]
     Dosage: 15 MG, / DAY
     Route: 065
  5. HALOPERIDOL [Interacting]
     Dosage: 3 MG, / DAY
     Route: 065
  6. VENLAFAXINE [Suspect]
     Dosage: 225 MG, / DAY
     Route: 065
  7. MIRTAZAPINE [Concomitant]
     Dosage: 15 MG, / DAY
     Route: 065
  8. HALOPERIDOL [Interacting]
     Dosage: 7.5 MG, / DAY
     Route: 065
  9. LORAZEPAM [Concomitant]
     Dosage: 2.5 MG, / DAY
     Route: 065
  10. ARIPIPRAZOLE [Interacting]
     Dosage: 15 MG, / DAY
     Route: 065
  11. LORAZEPAM [Concomitant]
     Indication: DEPRESSION
     Dosage: 4 MG, / DAY
     Route: 065
  12. VENLAFAXINE [Suspect]
     Indication: DEPRESSION
     Dosage: 150 MG, / DAY
     Route: 065
  13. HALOPERIDOL [Interacting]
     Indication: PSYCHOTIC DISORDER
     Dosage: 5 MG, / DAY
     Route: 065
  14. MIRTAZAPINE [Concomitant]
     Indication: DEPRESSION
     Dosage: 30 MG, / DAY
     Route: 065
  15. BISOPROLOL FUMARATE [Concomitant]
     Indication: PRODUCT USED FOR UNKNOWN INDICATION
     Dosage: 5 MG, / DAY
     Route: 065
  16. ARIPIPRAZOLE [Interacting]
     Dosage: 10 MG, / DAY
     Route: 065
  17. ARIPIPRAZOLE [Interacting]
     Dosage: 20 MG, / DAY
     Route: 065
  18. RISPERIDONE [Suspect]
     Indication: PSYCHOTIC DISORDER
     Dosage: 4 MG, / DAY
     Route: 065

REACTIONS (2)
  - GALACTORRHOEA [None]
  - PSYCHOTIC DISORDER [None]
